FAERS Safety Report 23201251 (Version 1)
Quarter: 2023Q4

REPORT INFORMATION
  Report Type: Report from Study
  Country: US (occurrence: US)
  Receive Date: 20231118
  Receipt Date: 20231118
  Transmission Date: 20240109
  Serious: No
  Sender: FDA-Public Use
  Company Number: US-ALXN-A202302665

PATIENT
  Sex: Female

DRUGS (1)
  1. ULTOMIRIS [Suspect]
     Active Substance: RAVULIZUMAB-CWVZ
     Indication: Myasthenia gravis
     Dosage: UNK
     Route: 065

REACTIONS (19)
  - Abdominal discomfort [Unknown]
  - Peripheral swelling [Unknown]
  - Swelling face [Unknown]
  - Balance disorder [Unknown]
  - Swelling of eyelid [Unknown]
  - Alopecia [Unknown]
  - Skin lesion [Unknown]
  - Muscular weakness [Unknown]
  - Musculoskeletal discomfort [Unknown]
  - Dyspnoea [Unknown]
  - Tremor [Unknown]
  - Hyperhidrosis [Unknown]
  - Mass [Unknown]
  - Spondylitis [Unknown]
  - Dysstasia [Unknown]
  - Back pain [Unknown]
  - Headache [Unknown]
  - Asthenia [Unknown]
  - Dizziness [Unknown]

NARRATIVE: CASE EVENT DATE: 20230227
